FAERS Safety Report 17684369 (Version 1)
Quarter: 2020Q2

REPORT INFORMATION
  Report Type: Spontaneous
  Country: US (occurrence: US)
  Receive Date: 20200418
  Receipt Date: 20200418
  Transmission Date: 20200714
  Serious: Yes (Disabling)
  Sender: FDA-Public Use
  Company Number: None

PATIENT
  Age: 26 Year
  Sex: Male
  Weight: 69.75 kg

DRUGS (1)
  1. PROPECIA [Suspect]
     Active Substance: FINASTERIDE
     Indication: ALOPECIA
     Route: 048
     Dates: start: 20190410, end: 20190417

REACTIONS (6)
  - Genital hypoaesthesia [None]
  - Erectile dysfunction [None]
  - Nipple pain [None]
  - Quality of life decreased [None]
  - Cognitive disorder [None]
  - Feeling abnormal [None]

NARRATIVE: CASE EVENT DATE: 20190418
